FAERS Safety Report 14385128 (Version 1)
Quarter: 2018Q1

REPORT INFORMATION
  Report Type: Spontaneous
  Country: US (occurrence: US)
  Receive Date: 20180115
  Receipt Date: 20180115
  Transmission Date: 20180509
  Serious: Yes (Other)
  Sender: FDA-Public Use
  Company Number: US-LPDUSPRD-20180012

PATIENT
  Age: 6 Month
  Sex: Male
  Weight: 6.3 kg

DRUGS (8)
  1. PHOSPHOROUS [Concomitant]
     Dosage: 437 MG/DAY
     Route: 065
  2. CHLOROTHIAZIDE. [Concomitant]
     Active Substance: CHLOROTHIAZIDE
     Dosage: 22.5 MG/KG/DAY
     Route: 065
  3. CALCITRIOL. [Concomitant]
     Active Substance: CALCITRIOL
     Dosage: UNKNOWN
     Route: 065
  4. PREDNISOLONE. [Concomitant]
     Active Substance: PREDNISOLONE
     Dosage: 0.5 MG/KG/EVERY 48 HOURS
     Route: 065
  5. ELEMENTAL CALCIUM [Concomitant]
     Dosage: 603 MG/DAY
     Route: 065
  6. FUROSEMIDE INJECTION, USP (5702-25) [Suspect]
     Active Substance: FUROSEMIDE
     Dosage: 3 MG/KG/DAY
     Route: 042
  7. THIAZIDE [Concomitant]
     Active Substance: UNSPECIFIED INGREDIENT
     Dosage: UNKNOWN
  8. VITAMIN D [Concomitant]
     Active Substance: CHOLECALCIFEROL
     Dosage: 260 U/DAY
     Route: 065

REACTIONS (1)
  - Hyperparathyroidism secondary [Unknown]
